FAERS Safety Report 18891636 (Version 1)
Quarter: 2021Q1

REPORT INFORMATION
  Report Type: Spontaneous
  Country: US (occurrence: US)
  Receive Date: 20210215
  Receipt Date: 20210215
  Transmission Date: 20210420
  Serious: No
  Sender: FDA-Public Use
  Company Number: US-SA-2021SA043062

PATIENT
  Age: 28 Year
  Sex: Female

DRUGS (1)
  1. TUBERSOL [Suspect]
     Active Substance: TUBERCULIN PURIFIED PROTEIN DERIVATIVE
     Indication: TUBERCULIN TEST
     Dosage: UNK UNK, TOTAL
     Dates: start: 20210129

REACTIONS (5)
  - Blood pressure increased [Unknown]
  - Erythema [Unknown]
  - Throat tightness [Unknown]
  - Pruritus [Unknown]
  - Urticaria [Unknown]
